FAERS Safety Report 4843357-X (Version None)
Quarter: 2005Q4

REPORT INFORMATION
  Report Type: 
  Country: None (occurrence: None)
  Receive Date: 20051201
  Receipt Date: 20051123
  Transmission Date: 20060501
  Serious: Yes (Hospitalization)
  Sender: FDA-Public Use
  Company Number: US-MERCK-0511USA04207

PATIENT
  Age: 61 Year
  Sex: Female
  Weight: 86 kg

DRUGS (4)
  1. VIOXX [Suspect]
     Indication: ARTHRITIS
     Route: 048
  2. ZOLOFT [Concomitant]
     Indication: DEPRESSION
     Route: 065
  3. WELLBUTRIN [Concomitant]
     Indication: DEPRESSION
     Route: 065
  4. SYNTHROID [Concomitant]
     Route: 065

REACTIONS (3)
  - MYOCARDIAL INFARCTION [None]
  - SPINAL DISORDER [None]
  - WRIST FRACTURE [None]
